FAERS Safety Report 20981847 (Version 1)
Quarter: 2022Q2

REPORT INFORMATION
  Report Type: Spontaneous
  Country: US (occurrence: US)
  Receive Date: 20220620
  Receipt Date: 20220620
  Transmission Date: 20220721
  Serious: No
  Sender: FDA-Public Use
  Company Number: US-PFIZER INC-202200848267

PATIENT
  Age: 57 Year
  Sex: Female

DRUGS (3)
  1. AZITHROMYCIN [Suspect]
     Active Substance: AZITHROMYCIN
     Indication: Pneumonia viral
     Dosage: UNK
     Dates: start: 2022
  2. ENBREL [Concomitant]
     Active Substance: ETANERCEPT
     Dosage: 50 MILLIGRAM, QWK
     Route: 065
  3. PREDNISONE [Concomitant]
     Active Substance: PREDNISONE
     Indication: Pneumonia viral
     Dosage: UNK
     Dates: start: 2022

REACTIONS (3)
  - Drug ineffective for unapproved indication [Unknown]
  - Off label use [Unknown]
  - Blood test abnormal [Unknown]

NARRATIVE: CASE EVENT DATE: 20220101
